FAERS Safety Report 10021479 (Version 1)
Quarter: 2014Q1

REPORT INFORMATION
  Report Type: Spontaneous
  Country: BR (occurrence: BR)
  Receive Date: 20140319
  Receipt Date: 20140319
  Transmission Date: 20141002
  Serious: Yes (Other)
  Sender: FDA-Public Use
  Company Number: BR-ABBVIE-14P-020-1214114-00

PATIENT
  Sex: Male
  Weight: 40 kg

DRUGS (2)
  1. DEPAKENE [Suspect]
     Indication: DEPRESSION
     Dosage: DAILY DOSE: 1000 MG; IN THE AFTERNOON, AT 1:00PM
     Route: 048
     Dates: start: 2013
  2. DEPAKENE [Suspect]
     Route: 048

REACTIONS (6)
  - Cardiac arrest [Recovering/Resolving]
  - Cardiac arrest [Recovering/Resolving]
  - Amnesia [Unknown]
  - Accident [Unknown]
  - Off label use [Unknown]
  - Underdose [Unknown]
